FAERS Safety Report 9934689 (Version 1)
Quarter: 2014Q1

REPORT INFORMATION
  Report Type: Spontaneous
  Country: US (occurrence: US)
  Receive Date: 20140228
  Receipt Date: 20140228
  Transmission Date: 20141002
  Serious: No
  Sender: FDA-Public Use
  Company Number: US-ASTRAZENECA-2013SE51449

PATIENT
  Age: 41 Year
  Sex: Female
  Weight: 74.8 kg

DRUGS (1)
  1. METOPROLOL SUCCINATE AZ [Suspect]
     Indication: VENTRICULAR EXTRASYSTOLES
     Dosage: 0.5 OF 25MG DAILY GENERIC
     Route: 048
     Dates: start: 2007, end: 20130628

REACTIONS (4)
  - Drug hypersensitivity [Recovered/Resolved]
  - Pruritus [Recovered/Resolved]
  - Rash [Recovered/Resolved]
  - Off label use [Recovered/Resolved]
